FAERS Safety Report 4342126-7 (Version None)
Quarter: 2004Q1

REPORT INFORMATION
  Report Type: 
  Country: None (occurrence: None)
  Receive Date: 20040329
  Receipt Date: 20040204
  Transmission Date: 20041129
  Serious: No
  Sender: FDA-Public Use
  Company Number: 04P-163-0249310-00

PATIENT
  Age: 62 Year
  Sex: Female

DRUGS (5)
  1. HUMIRA [Suspect]
     Indication: RHEUMATOID ARTHRITIS
     Dosage: 40 MG 1 IN 2 WK SUBCUTANEOUS
     Route: 058
     Dates: start: 20040125, end: 20040129
  2. HYDROCODONE [Concomitant]
  3. FOLIC ACID [Concomitant]
  4. HORMONES [Concomitant]
  5. ANTI-DEPRESSANT [Concomitant]

REACTIONS (1)
  - DRUG INEFFECTIVE [None]
